FAERS Safety Report 24868886 (Version 1)
Quarter: 2025Q1

REPORT INFORMATION
  Report Type: Spontaneous
  Country: US (occurrence: US)
  Receive Date: 20250121
  Receipt Date: 20250121
  Transmission Date: 20250409
  Serious: Yes (Other)
  Sender: ABBVIE
  Company Number: US-ABBVIE-6084479

PATIENT
  Age: 71 Year
  Sex: Female

DRUGS (2)
  1. UPADACITINIB [Suspect]
     Active Substance: UPADACITINIB
     Indication: Product used for unknown indication
     Route: 048
  2. METHOTREXATE [Concomitant]
     Active Substance: METHOTREXATE
     Indication: Product used for unknown indication

REACTIONS (5)
  - Skin discharge [Unknown]
  - Skin ulcer [Unknown]
  - Mycobacterium chelonae infection [Unknown]
  - Herpes zoster [Unknown]
  - Nodule [Unknown]

NARRATIVE: CASE EVENT DATE: 20240301
